FAERS Safety Report 5252434-3 (Version None)
Quarter: 2007Q1

REPORT INFORMATION
  Report Type: 
  Country: None (occurrence: None)
  Receive Date: 20070301
  Receipt Date: 20061107
  Transmission Date: 20070707
  Serious: Yes (Death, Hospitalization)
  Sender: FDA-Public Use
  Company Number: US-BRISTOL-MYERS SQUIBB COMPANY-13569561

PATIENT
  Age: 66 Year
  Sex: Female
  Weight: 72 kg

DRUGS (2)
  1. CETUXIMAB [Suspect]
     Route: 042
     Dates: start: 20060613, end: 20060802
  2. RADIATION THERAPY [Concomitant]

REACTIONS (1)
  - LUNG INFILTRATION [None]
